FAERS Safety Report 5117323-3 (Version None)
Quarter: 2006Q3

REPORT INFORMATION
  Report Type: 
  Country: None (occurrence: None)
  Receive Date: 20060926
  Receipt Date: 20060912
  Transmission Date: 20061208
  Serious: Yes (Other)
  Sender: FDA-Public Use
  Company Number: 2006SP001324

PATIENT
  Sex: Male

DRUGS (5)
  1. ALBUTEROL SULATE [Suspect]
     Indication: ASTHMA
     Dosage: 4 DF; PRN; INH
     Route: 055
  2. SALMETEROL [Suspect]
     Indication: BRONCHOSPASM
     Dosage: 50 MCG;BID;INH
     Route: 055
  3. PULMICORT [Concomitant]
  4. THEOPHYL-SR [Concomitant]
  5. FLUTICASONE PROPIONATE [Concomitant]

REACTIONS (4)
  - ASPHYXIA [None]
  - CYANOSIS [None]
  - LOSS OF CONSCIOUSNESS [None]
  - THERAPEUTIC RESPONSE DECREASED [None]
